FAERS Safety Report 25622586 (Version 1)
Quarter: 2025Q3

REPORT INFORMATION
  Report Type: Spontaneous
  Country: US (occurrence: None)
  Receive Date: 20250729
  Receipt Date: 20250729
  Transmission Date: 20251020
  Serious: Yes (Hospitalization, Other)
  Sender: FDA-CTU
  Company Number: None

PATIENT
  Age: 43 Year
  Sex: Female
  Weight: 83.25 kg

DRUGS (19)
  1. ADDERALL XR [Suspect]
     Active Substance: AMPHETAMINE ASPARTATE\AMPHETAMINE SULFATE\DEXTROAMPHETAMINE SACCHARATE\DEXTROAMPHETAMINE SULFATE
     Indication: Attention deficit hyperactivity disorder
     Route: 048
  2. ADDERALL XR [Suspect]
     Active Substance: AMPHETAMINE ASPARTATE\AMPHETAMINE SULFATE\DEXTROAMPHETAMINE SACCHARATE\DEXTROAMPHETAMINE SULFATE
     Indication: Executive dysfunction
  3. GABAPENTIN [Concomitant]
     Active Substance: GABAPENTIN
  4. PRAZOSIN [Concomitant]
     Active Substance: PRAZOSIN
  5. XANAX [Concomitant]
     Active Substance: ALPRAZOLAM
  6. AMBIEN [Concomitant]
     Active Substance: ZOLPIDEM TARTRATE
  7. ADDERALL [Concomitant]
     Active Substance: AMPHETAMINE ASPARTATE\AMPHETAMINE SULFATE\DEXTROAMPHETAMINE SACCHARATE\DEXTROAMPHETAMINE SULFATE
  8. Zyrtec/Claritin [Concomitant]
  9. ALBUTEROL [Concomitant]
     Active Substance: ALBUTEROL
  10. TENS and EMS units [Concomitant]
  11. UNSPECIFIED INGREDIENT [Concomitant]
     Active Substance: UNSPECIFIED INGREDIENT
  12. BENADRYL [Concomitant]
     Active Substance: DIPHENHYDRAMINE HYDROCHLORIDE
  13. VITAMIN D [Concomitant]
     Active Substance: VITAMIN D NOS
  14. MAGNESIUM GLYCINATE [Concomitant]
     Active Substance: MAGNESIUM GLYCINATE
  15. OMEGA-3 ACIDS [Concomitant]
     Active Substance: OMEGA-3 FATTY ACIDS
  16. KOS vanilla a plant protein (soy-free) [Concomitant]
  17. PROBIOTICS NOS [Concomitant]
     Active Substance: PROBIOTICS NOS
  18. turmeric/ curcumin [Concomitant]
  19. digestive enzymes (FODMAP sensitive) [Concomitant]

REACTIONS (16)
  - Rectal haemorrhage [None]
  - Therapy cessation [None]
  - Grip strength decreased [None]
  - Motor dysfunction [None]
  - Coordination abnormal [None]
  - Limb injury [None]
  - Micturition urgency [None]
  - Back pain [None]
  - Neuralgia [None]
  - Radiculopathy [None]
  - Paraesthesia [None]
  - Hemiparesis [None]
  - Nervous system disorder [None]
  - Syncope [None]
  - Therapy interrupted [None]
  - Speech disorder [None]

NARRATIVE: CASE EVENT DATE: 20250727
